FAERS Safety Report 14544019 (Version 1)
Quarter: 2018Q1

REPORT INFORMATION
  Report Type: Spontaneous
  Country: JP (occurrence: JP)
  Receive Date: 20180216
  Receipt Date: 20180216
  Transmission Date: 20180509
  Serious: Yes (Death, Other)
  Sender: FDA-Public Use
  Company Number: JP-PFIZER INC-2018067261

PATIENT
  Age: 88 Year

DRUGS (2)
  1. DALACIN [Suspect]
     Active Substance: CLINDAMYCIN
     Dosage: UNK
  2. ZYVOX [Suspect]
     Active Substance: LINEZOLID
     Dosage: UNK

REACTIONS (1)
  - Interstitial lung disease [Fatal]
